FAERS Safety Report 4923069-4 (Version None)
Quarter: 2006Q1

REPORT INFORMATION
  Report Type: 
  Country: None (occurrence: None)
  Receive Date: 20060113
  Receipt Date: 20041230
  Transmission Date: 20060701
  Serious: Yes (Other)
  Sender: FDA-Public Use
  Company Number: HQWYE195116JUL04

PATIENT
  Age: 76 Year
  Sex: Female
  Weight: 44.49 kg

DRUGS (5)
  1. PREMPRO [Suspect]
     Indication: HORMONE REPLACEMENT THERAPY
     Dates: start: 19980101
  2. PREMARIN [Suspect]
     Dates: start: 19970101
  3. ATENOLOL [Concomitant]
  4. OSCAL (CALCIUM CARBONATE) [Concomitant]
  5. ACTONEL [Concomitant]

REACTIONS (1)
  - BREAST CANCER [None]
